FAERS Safety Report 7994560-1 (Version None)
Quarter: 2011Q4

REPORT INFORMATION
  Report Type: 
  Country: None (occurrence: None)
  Receive Date: 20111220
  Receipt Date: 20111215
  Transmission Date: 20120403
  Serious: Yes (Other)
  Sender: FDA-Public Use
  Company Number: US-PFIZER INC-2011305999

PATIENT
  Sex: Female
  Weight: 90.703 kg

DRUGS (8)
  1. LYRICA [Suspect]
     Indication: FIBROMYALGIA
     Dosage: 150 MG, 3X/DAY
     Route: 048
     Dates: end: 20110201
  2. LYRICA [Suspect]
     Dosage: 100 MG, 1X/DAY
     Route: 048
     Dates: start: 20110201, end: 20111101
  3. ESTRACE [Concomitant]
     Dosage: 0.5 MG, UNK
  4. ACETYLSALICYLIC ACID [Concomitant]
     Dosage: 81 MG, 1X/DAY
  5. XANAX [Concomitant]
     Dosage: 1 MG, UNK
  6. ACYCLOVIR [Concomitant]
     Dosage: 800 MG, 2X/DAY
  7. PRISTIQ [Concomitant]
     Indication: DEPRESSION
     Dosage: 50 MG, 1X/DAY
  8. CARISOPRODOL [Concomitant]
     Dosage: 350 MG, 1X/DAY

REACTIONS (13)
  - DEPRESSION [None]
  - STRESS [None]
  - NECK PAIN [None]
  - ANGER [None]
  - HYPERSENSITIVITY [None]
  - MUSCULOSKELETAL CHEST PAIN [None]
  - GASTROOESOPHAGEAL REFLUX DISEASE [None]
  - HYPOTHYROIDISM [None]
  - DIARRHOEA [None]
  - MOOD SWINGS [None]
  - SUICIDAL IDEATION [None]
  - HYPERTENSION [None]
  - ABDOMINAL TENDERNESS [None]
